FAERS Safety Report 11023417 (Version 4)
Quarter: 2015Q2

REPORT INFORMATION
  Report Type: Spontaneous
  Country: US (occurrence: US)
  Receive Date: 20150413
  Receipt Date: 20150612
  Transmission Date: 20150821
  Serious: No
  Sender: FDA-Public Use
  Company Number: US-PFIZER INC-2015121141

PATIENT
  Age: 94 Year
  Sex: Female

DRUGS (1)
  1. LYRICA [Suspect]
     Active Substance: PREGABALIN
     Indication: PARAESTHESIA
     Dosage: 75 MG, 1X/DAY (BEDTIME)

REACTIONS (2)
  - Limb injury [Not Recovered/Not Resolved]
  - Peripheral swelling [Unknown]
